FAERS Safety Report 7445646-1 (Version None)
Quarter: 2011Q2

REPORT INFORMATION
  Report Type: 
  Country: None (occurrence: None)
  Receive Date: 20110429
  Receipt Date: 20110422
  Transmission Date: 20111010
  Serious: Yes (Death, Hospitalization, Other)
  Sender: FDA-Public Use
  Company Number: US-CELGENEUS-163-50794-11032072

PATIENT
  Sex: Male

DRUGS (8)
  1. SENNA [Concomitant]
     Indication: CONSTIPATION
     Route: 048
  2. VIDAZA [Suspect]
     Dosage: 150 MILLIGRAM
     Route: 065
     Dates: start: 20101111, end: 20110308
  3. METFORMIN [Concomitant]
     Indication: DIABETES MELLITUS
     Route: 065
  4. POTASSIUM CHLORIDE [Concomitant]
     Dosage: 10 MILLIEQUIVALENTS
     Route: 048
  5. PROCRIT [Concomitant]
     Route: 065
  6. FINASTERIDE [Concomitant]
     Dosage: 5 MILLIGRAM
     Route: 048
  7. VIDAZA [Suspect]
  8. ALLOPURINOL [Concomitant]
     Indication: GOUT
     Dosage: 100 MILLIGRAM
     Route: 048

REACTIONS (3)
  - REFRACTORY ANAEMIA WITH AN EXCESS OF BLASTS [None]
  - ACUTE MYELOID LEUKAEMIA [None]
  - CHOLECYSTITIS [None]
